FAERS Safety Report 5418468-0 (Version None)
Quarter: 2007Q3

REPORT INFORMATION
  Report Type: 
  Country: None (occurrence: None)
  Receive Date: 20070817
  Receipt Date: 20070807
  Transmission Date: 20080115
  Serious: Yes (Hospitalization)
  Sender: FDA-Public Use
  Company Number: US-ELI_LILLY_AND_COMPANY-US200708001427

PATIENT
  Age: 65 Year
  Sex: Female

DRUGS (5)
  1. CYMBALTA [Suspect]
     Indication: BIPOLAR DISORDER
     Dosage: 60 MG, UNK
  2. TRILEPTAL [Concomitant]
     Dosage: 300 MG, 2/D
  3. PREVACID [Concomitant]
     Dosage: 30 MG, UNK
  4. AVELOX [Concomitant]
     Route: 042
  5. AMINOPHYLLINE [Concomitant]
     Route: 042

REACTIONS (1)
  - RESPIRATORY DISTRESS [None]
